FAERS Safety Report 15422562 (Version 2)
Quarter: 2018Q4

REPORT INFORMATION
  Report Type: Spontaneous
  Country: BR (occurrence: BR)
  Receive Date: 20180925
  Receipt Date: 20181019
  Transmission Date: 20190204
  Serious: No
  Sender: FDA-Public Use
  Company Number: BR-AMGEN-BRASP2018132634

PATIENT
  Age: 52 Year
  Sex: Female

DRUGS (3)
  1. ENBREL [Suspect]
     Active Substance: ETANERCEPT
     Indication: PSORIATIC ARTHROPATHY
     Dosage: 1 APPLICATION PER WEEK
     Route: 065
     Dates: start: 20150105, end: 201801
  2. DEPAKENE [Concomitant]
     Active Substance: VALPROIC ACID
     Dosage: UNK
  3. PURAN [Concomitant]
     Active Substance: LEVOTHYROXINE SODIUM
     Dosage: UNK

REACTIONS (7)
  - Feeling abnormal [Not Recovered/Not Resolved]
  - Vomiting [Recovered/Resolved]
  - Furuncle [Recovered/Resolved]
  - Immune system disorder [Not Recovered/Not Resolved]
  - Hypotension [Recovered/Resolved]
  - Gallbladder disorder [Not Recovered/Not Resolved]
  - Diarrhoea [Recovered/Resolved]

NARRATIVE: CASE EVENT DATE: 201801
